FAERS Safety Report 11182861 (Version 2)
Quarter: 2015Q2

REPORT INFORMATION
  Report Type: Report from Study
  Country: FR (occurrence: FR)
  Receive Date: 20150611
  Receipt Date: 20150623
  Transmission Date: 20150821
  Serious: Yes (Hospitalization)
  Sender: FDA-Public Use
  Company Number: PHHY2015FR018455

PATIENT
  Age: 98 Year
  Sex: Female

DRUGS (9)
  1. NEORAL [Suspect]
     Active Substance: CYCLOSPORINE
     Indication: RENAL TRANSPLANT
  2. MYCOPHENOLIC ACID. [Suspect]
     Active Substance: MYCOPHENOLIC ACID
     Indication: RENAL TRANSPLANT
     Dosage: UNK
     Route: 048
     Dates: start: 20091214, end: 20140109
  3. SOLUPRED [Suspect]
     Active Substance: PREDNISOLONE
     Indication: RENAL TRANSPLANT
  4. NEORAL [Suspect]
     Active Substance: CYCLOSPORINE
     Indication: PROPHYLAXIS
     Dosage: UNK
     Route: 048
     Dates: start: 20091214, end: 20130628
  5. ADVAGRAF [Suspect]
     Active Substance: TACROLIMUS
     Indication: RENAL TRANSPLANT
  6. MYCOPHENOLIC ACID. [Suspect]
     Active Substance: MYCOPHENOLIC ACID
     Indication: IMMUNOSUPPRESSANT DRUG THERAPY
  7. SOLUPRED [Suspect]
     Active Substance: PREDNISOLONE
     Indication: PROPHYLAXIS
     Dosage: UNK
     Route: 048
     Dates: start: 20100525
  8. SOLUPRED [Suspect]
     Active Substance: PREDNISOLONE
     Indication: IMMUNOSUPPRESSANT DRUG THERAPY
     Dosage: UNK
     Route: 048
     Dates: start: 20091214
  9. ADVAGRAF [Suspect]
     Active Substance: TACROLIMUS
     Indication: PROPHYLAXIS
     Dosage: UNK
     Route: 048
     Dates: start: 20130628

REACTIONS (7)
  - Pulmonary tuberculosis [Recovered/Resolved]
  - Cytomegalovirus test positive [Recovered/Resolved]
  - Lymph node tuberculosis [Recovered/Resolved]
  - Enteritis [Recovered/Resolved]
  - Pseudomonas infection [Recovered/Resolved]
  - Chronic kidney disease [Not Recovered/Not Resolved]
  - Clostridium difficile colitis [Recovered/Resolved]

NARRATIVE: CASE EVENT DATE: 20131106
